FAERS Safety Report 11660071 (Version 1)
Quarter: 2015Q4

REPORT INFORMATION
  Report Type: Spontaneous
  Country: US (occurrence: US)
  Receive Date: 20151026
  Receipt Date: 20151026
  Transmission Date: 20160304
  Serious: Yes (Other)
  Sender: FDA-Public Use
  Company Number: US-PROCTER_AND_GAMBLE-GS15011432

PATIENT

DRUGS (1)
  1. ZZZQUIL NIGHTTIME SLEEP-AID [Suspect]
     Active Substance: DIPHENHYDRAMINE HYDROCHLORIDE
     Dosage: UNKNOWN DOSE AND FREQUENCY
     Route: 048

REACTIONS (3)
  - Insomnia [Unknown]
  - Amnesia [Unknown]
  - Drug dependence [Unknown]
